FAERS Safety Report 7329835-2 (Version None)
Quarter: 2011Q1

REPORT INFORMATION
  Report Type: 
  Country: None (occurrence: None)
  Receive Date: 20110303
  Receipt Date: 20110218
  Transmission Date: 20110831
  Serious: Yes (Other)
  Sender: FDA-Public Use
  Company Number: US-ELI_LILLY_AND_COMPANY-US201003002989

PATIENT
  Sex: Female

DRUGS (6)
  1. FLUOXETINE [Concomitant]
     Dosage: 10 MG, UNK
  2. ZOLPIDEM [Concomitant]
     Dosage: 10 MG, UNK
  3. CYMBALTA [Suspect]
     Dosage: 60 MG, DAILY (1/D)
     Route: 048
     Dates: end: 20090323
  4. LAMICTAL [Concomitant]
     Dosage: 200 MG, UNK
  5. CYMBALTA [Suspect]
     Indication: MAJOR DEPRESSION
     Dosage: 60 MG, UNK
     Route: 048
     Dates: start: 20080201
  6. CYMBALTA [Suspect]
     Dosage: 30 MG, UNK
     Dates: start: 20080701

REACTIONS (4)
  - SENSITIVITY OF TEETH [None]
  - OCULAR ICTERUS [None]
  - YELLOW SKIN [None]
  - TOOTH DISCOLOURATION [None]
